FAERS Safety Report 19575092 (Version 1)
Quarter: 2021Q3

REPORT INFORMATION
  Report Type: Spontaneous
  Country: US (occurrence: US)
  Receive Date: 20210716
  Receipt Date: 20210716
  Transmission Date: 20211014
  Serious: No
  Sender: FDA-Public Use
  Company Number: None

PATIENT
  Age: 60 Year
  Sex: Female
  Weight: 85.4 kg

DRUGS (13)
  1. LEVOTHYROXINE. [Concomitant]
     Active Substance: LEVOTHYROXINE
     Dates: start: 20210713
  2. AZITHROMYCIN ANHYDROUS. [Concomitant]
     Active Substance: AZITHROMYCIN ANHYDROUS
     Dates: start: 20210713
  3. ENOXAPARIN [Concomitant]
     Active Substance: ENOXAPARIN
     Dates: start: 20210713
  4. EZETIMIBE. [Concomitant]
     Active Substance: EZETIMIBE
     Dates: start: 20210713
  5. LISPRO INSULIN [Concomitant]
     Active Substance: INSULIN LISPRO
     Dates: start: 20210713
  6. REMDESIVIR. [Suspect]
     Active Substance: REMDESIVIR
     Indication: COVID-19
     Route: 042
     Dates: start: 20210713, end: 20210713
  7. ATORVASTATIN [Concomitant]
     Active Substance: ATORVASTATIN
     Dates: start: 20210713
  8. DEXAMETHASONE. [Concomitant]
     Active Substance: DEXAMETHASONE
     Dates: start: 20210713
  9. METHYLPREDNISOLONE. [Concomitant]
     Active Substance: METHYLPREDNISOLONE
     Dates: start: 20210713
  10. ACETAMINOPHEN. [Concomitant]
     Active Substance: ACETAMINOPHEN
     Dates: start: 20210713
  11. CEFTRIAXONE. [Concomitant]
     Active Substance: CEFTRIAXONE
     Dates: start: 20210713
  12. TOCULIZUMAB [Concomitant]
     Active Substance: TOCILIZUMAB
     Dates: start: 20210713, end: 20210713
  13. DOCUSATE?SENNA [Concomitant]
     Dates: start: 20210713

REACTIONS (2)
  - Bradycardia [None]
  - Condition aggravated [None]

NARRATIVE: CASE EVENT DATE: 20210713
